FAERS Safety Report 22343999 (Version 1)
Quarter: 2023Q2

REPORT INFORMATION
  Report Type: Spontaneous
  Country: FR (occurrence: FR)
  Receive Date: 20230519
  Receipt Date: 20230519
  Transmission Date: 20230722
  Serious: Yes (Other)
  Sender: FDA-Public Use
  Company Number: FR-009507513-2305FRA004694

PATIENT
  Age: 30 Year
  Sex: Female

DRUGS (9)
  1. PEMBROLIZUMAB [Suspect]
     Active Substance: PEMBROLIZUMAB
     Indication: Metastatic malignant melanoma
  2. PEMBROLIZUMAB [Suspect]
     Active Substance: PEMBROLIZUMAB
     Indication: Metastases to lymph nodes
  3. PEMBROLIZUMAB [Suspect]
     Active Substance: PEMBROLIZUMAB
     Indication: Metastases to central nervous system
  4. IPILIMUMAB [Suspect]
     Active Substance: IPILIMUMAB
     Indication: Metastatic malignant melanoma
     Dosage: UNK
  5. IPILIMUMAB [Suspect]
     Active Substance: IPILIMUMAB
     Indication: Metastases to lymph nodes
  6. IPILIMUMAB [Suspect]
     Active Substance: IPILIMUMAB
     Indication: Metastases to central nervous system
  7. NIVOLUMAB [Suspect]
     Active Substance: NIVOLUMAB
     Indication: Metastatic malignant melanoma
     Dosage: UNK
  8. NIVOLUMAB [Suspect]
     Active Substance: NIVOLUMAB
     Indication: Metastases to lymph nodes
  9. NIVOLUMAB [Suspect]
     Active Substance: NIVOLUMAB
     Indication: Metastases to central nervous system

REACTIONS (1)
  - Hepatic necrosis [Recovered/Resolved]
